FAERS Safety Report 8151452-5 (Version None)
Quarter: 2012Q1

REPORT INFORMATION
  Report Type: 
  Country: None (occurrence: None)
  Receive Date: 20120220
  Receipt Date: 20120210
  Transmission Date: 20120608
  Serious: Yes (Other)
  Sender: FDA-Public Use
  Company Number: FR-ROCHE-1039424

PATIENT
  Sex: Female

DRUGS (4)
  1. HERCEPTIN [Suspect]
     Indication: BREAST CANCER METASTATIC
     Route: 042
     Dates: start: 20080930, end: 20090301
  2. TAXOTERE [Suspect]
     Indication: BREAST CANCER METASTATIC
     Route: 042
     Dates: start: 20080930, end: 20090317
  3. FEMARA [Suspect]
     Indication: BREAST CANCER METASTATIC
     Route: 048
     Dates: start: 20090301
  4. HERCEPTIN [Suspect]
     Route: 042
     Dates: start: 20090401

REACTIONS (1)
  - ANDROGENETIC ALOPECIA [None]
